FAERS Safety Report 5139451-9 (Version None)
Quarter: 2006Q4

REPORT INFORMATION
  Report Type: 
  Country: None (occurrence: None)
  Receive Date: 20061030
  Receipt Date: 20060718
  Transmission Date: 20070319
  Serious: No
  Sender: FDA-Public Use
  Company Number: US-GLAXOSMITHKLINE-A0612652A

PATIENT
  Age: 72 Year
  Sex: Female

DRUGS (6)
  1. SEREVENT [Suspect]
     Indication: CHRONIC OBSTRUCTIVE PULMONARY DISEASE
     Dosage: 50MCG TWICE PER DAY
     Route: 055
     Dates: start: 19930101
  2. ALBUTEROL [Concomitant]
  3. LASIX [Concomitant]
  4. ALPRAZOLAM [Concomitant]
  5. SEROQUEL [Concomitant]
  6. OXYGEN THERAPY [Concomitant]

REACTIONS (6)
  - ABDOMINAL DISTENSION [None]
  - CHEST DISCOMFORT [None]
  - CHEST PAIN [None]
  - DRUG INEFFECTIVE [None]
  - DYSPNOEA [None]
  - PHARMACEUTICAL PRODUCT COMPLAINT [None]
